FAERS Safety Report 9769653 (Version 7)
Quarter: 2015Q2

REPORT INFORMATION
  Report Type: Spontaneous
  Country: US (occurrence: US)
  Receive Date: 20131218
  Receipt Date: 20150430
  Transmission Date: 20150821
  Serious: Yes (Hospitalization, Disabling, Other)
  Sender: FDA-Public Use
  Company Number: CHPA2013US018380

PATIENT
  Age: 48 Year
  Sex: Female
  Weight: 75.74 kg

DRUGS (19)
  1. COMPAZINE [Concomitant]
     Active Substance: PROCHLORPERAZINE MALEATE
     Indication: NAUSEA
     Dosage: 5 MG, Q8H
     Route: 048
     Dates: start: 20110919
  2. ZANAFLEX [Concomitant]
     Active Substance: TIZANIDINE HYDROCHLORIDE
     Dosage: 2 MG, UNK
     Route: 048
  3. ASPIRIN. [Concomitant]
     Active Substance: ASPIRIN
     Indication: HEADACHE
     Dosage: 2 TO 3 DF, QD
     Route: 065
  4. FLUOCINOLONE [Concomitant]
     Active Substance: FLUOCINOLONE
     Indication: RASH
     Dosage: 1 TO 2 TIMES DAILY, PRN
     Route: 061
  5. ATIVAN [Suspect]
     Active Substance: LORAZEPAM
     Indication: SLEEP DISORDER THERAPY
     Dosage: 2 MG, QHS
     Route: 048
  6. MELOXICAM. [Concomitant]
     Active Substance: MELOXICAM
     Indication: INFLAMMATION
  7. TRANSDERM SCOP [Concomitant]
     Active Substance: SCOPOLAMINE
     Indication: PRODUCT USED FOR UNKNOWN INDICATION
     Dosage: 1.5 MG, Q72H
  8. EXCEDRIN MIGRAINE [Suspect]
     Active Substance: ACETAMINOPHEN\ASPIRIN\CAFFEINE
     Indication: PAIN
  9. MELOXICAM. [Concomitant]
     Active Substance: MELOXICAM
     Indication: PAIN
     Dosage: 15 MG, 1 OR 2 DAILY
     Route: 048
     Dates: start: 20080422
  10. FLUOCINOLONE [Concomitant]
     Active Substance: FLUOCINOLONE
     Indication: RASH PRURITIC
     Dosage: 1 TO 2 TIMES DAILY, PRN
     Route: 061
  11. ALEVE [Concomitant]
     Active Substance: NAPROXEN SODIUM
     Indication: MUSCLE STRAIN
     Route: 065
  12. HYDROCODONE BITARTRATE AND ACETAMINOPHEN [Concomitant]
     Active Substance: ACETAMINOPHEN\HYDROCODONE BITARTRATE
     Indication: PAIN
     Dosage: 1- 2 DF, EVERY 4 TO 6 HOURS
     Route: 048
     Dates: start: 20080118
  13. CYCLOBENZAPRINE HCL [Concomitant]
     Active Substance: CYCLOBENZAPRINE HYDROCHLORIDE
     Indication: PRODUCT USED FOR UNKNOWN INDICATION
     Dosage: 10 MG, TID PRN
     Route: 048
  14. LORTAB [Concomitant]
     Active Substance: ACETAMINOPHEN\HYDROCODONE BITARTRATE
     Indication: PAIN
     Dosage: 1 DF, Q4H PRN
     Route: 048
  15. COMPAZINE [Concomitant]
     Active Substance: PROCHLORPERAZINE MALEATE
     Indication: VOMITING
  16. EXCEDRIN MIGRAINE [Suspect]
     Active Substance: ACETAMINOPHEN\ASPIRIN\CAFFEINE
     Indication: INTERVERTEBRAL DISC PROTRUSION
     Dosage: 3-9 DF, QD
     Route: 065
     Dates: start: 2005
  17. SOMA [Suspect]
     Active Substance: CARISOPRODOL
     Indication: MUSCLE STRAIN
     Dosage: 350 MG, QID
     Route: 048
     Dates: start: 20070611
  18. SOMA [Suspect]
     Active Substance: CARISOPRODOL
     Indication: ANXIETY DISORDER
  19. NORCO [Concomitant]
     Active Substance: ACETAMINOPHEN\HYDROCODONE BITARTRATE
     Indication: PRODUCT USED FOR UNKNOWN INDICATION
     Dosage: 1 DF, TID PRN
     Route: 048
     Dates: start: 20110321

REACTIONS (75)
  - Loss of consciousness [Recovered/Resolved]
  - Genital herpes simplex [Unknown]
  - Hyperphagia [Unknown]
  - Hypermetropia [Unknown]
  - Trigger finger [Unknown]
  - Astigmatism [Unknown]
  - Meniscus injury [Unknown]
  - Hypokalaemia [Unknown]
  - Upper respiratory tract infection [Unknown]
  - Drug ineffective for unapproved indication [Unknown]
  - Incorrect dose administered [Unknown]
  - Incoherent [Unknown]
  - Urinary incontinence [Unknown]
  - Post-traumatic pain [Unknown]
  - Arthralgia [Unknown]
  - Abdominal discomfort [Unknown]
  - Foot deformity [Unknown]
  - Arthropathy [Unknown]
  - Movement disorder [Unknown]
  - Foaming at mouth [Unknown]
  - Tongue haemorrhage [Unknown]
  - Tooth injury [Unknown]
  - Abdominal pain [Unknown]
  - Presbyopia [Unknown]
  - Vitreous opacities [Unknown]
  - Milia [Unknown]
  - Headache [Unknown]
  - Stress [Unknown]
  - Nervous system disorder [Unknown]
  - Opiates positive [Unknown]
  - Asthma [Unknown]
  - Emotional distress [Not Recovered/Not Resolved]
  - Pain [Not Recovered/Not Resolved]
  - Urine barbiturates [Unknown]
  - Ciliary body disorder [Unknown]
  - Pain in extremity [Unknown]
  - Urinary tract disorder [Unknown]
  - Faecal incontinence [Unknown]
  - Tongue biting [Unknown]
  - Starvation [Unknown]
  - Contusion [Unknown]
  - Wheezing [Unknown]
  - Toothache [Unknown]
  - Spinal osteoarthritis [Unknown]
  - Blood pressure increased [Unknown]
  - Generalised tonic-clonic seizure [Recovered/Resolved]
  - Injury [Not Recovered/Not Resolved]
  - Fibrocystic breast disease [Unknown]
  - Neuralgia [Not Recovered/Not Resolved]
  - Back pain [Unknown]
  - Procedural complication [Unknown]
  - Anxiety disorder [Unknown]
  - Dizziness [Unknown]
  - Muscle strain [Unknown]
  - Cough [Unknown]
  - Metatarsalgia [Unknown]
  - Refraction disorder [Unknown]
  - Nausea [Unknown]
  - Road traffic accident [Unknown]
  - Activities of daily living impaired [Unknown]
  - Lip haemorrhage [Unknown]
  - Bite [Unknown]
  - Muscle spasms [Unknown]
  - Osteoarthritis [Unknown]
  - Eczema [Unknown]
  - Laceration [Unknown]
  - Eye pain [Unknown]
  - Eye naevus [Unknown]
  - Palpitations [Unknown]
  - Agitation [Recovered/Resolved]
  - Confusional state [Recovered/Resolved]
  - Drug screen positive [Unknown]
  - Ligament sprain [Unknown]
  - Vomiting [Unknown]
  - Off label use [Unknown]

NARRATIVE: CASE EVENT DATE: 20060720
